FAERS Safety Report 8294045-1 (Version None)
Quarter: 2012Q2

REPORT INFORMATION
  Report Type: 
  Country: None (occurrence: None)
  Receive Date: 20120418
  Receipt Date: 20120412
  Transmission Date: 20120825
  Serious: Yes (Other)
  Sender: FDA-Public Use
  Company Number: US-PFIZER INC-2012091864

PATIENT
  Sex: Female

DRUGS (3)
  1. EFFEXOR XR [Suspect]
     Indication: DEPRESSION
     Dosage: 150 MG, 2X/DAY
     Route: 048
     Dates: start: 20111201, end: 20120411
  2. TRAZODONE [Concomitant]
     Dosage: UNK
  3. BUSPAR [Concomitant]
     Indication: ANXIETY
     Dosage: UNK

REACTIONS (9)
  - PAIN [None]
  - CONFUSIONAL STATE [None]
  - NAUSEA [None]
  - FEELING ABNORMAL [None]
  - HYPERHIDROSIS [None]
  - FIBROMYALGIA [None]
  - RETCHING [None]
  - TREMOR [None]
  - DIZZINESS [None]
